FAERS Safety Report 12089106 (Version 1)
Quarter: 2016Q1

REPORT INFORMATION
  Report Type: Spontaneous
  Country: DK (occurrence: DK)
  Receive Date: 20160218
  Receipt Date: 20160218
  Transmission Date: 20160526
  Serious: Yes (Hospitalization, Other)
  Sender: FDA-Public Use
  Company Number: PHHY2016DK019894

PATIENT
  Sex: Female

DRUGS (1)
  1. METHOTREXATE [Suspect]
     Active Substance: METHOTREXATE
     Indication: PRODUCT USED FOR UNKNOWN INDICATION
     Dosage: 15 MG, QW
     Route: 065
     Dates: start: 20140612

REACTIONS (9)
  - Dizziness [Unknown]
  - Memory impairment [Unknown]
  - Disturbance in attention [Unknown]
  - Decreased appetite [Unknown]
  - Diplopia [Unknown]
  - Muscle tightness [Unknown]
  - Attention deficit/hyperactivity disorder [Unknown]
  - Visual impairment [Unknown]
  - Hallucination [Unknown]
